FAERS Safety Report 6403180-1 (Version None)
Quarter: 2009Q4

REPORT INFORMATION
  Report Type: 
  Country: None (occurrence: None)
  Receive Date: 20091016
  Receipt Date: 20091007
  Transmission Date: 20100525
  Serious: Yes (Other)
  Sender: FDA-Public Use
  Company Number: GB-JNJFOC-20091002857

PATIENT
  Age: 65 Year
  Sex: Male

DRUGS (4)
  1. REMICADE [Suspect]
     Indication: PSORIASIS
     Dosage: 2ND INFUSION
     Route: 042
     Dates: start: 20080101, end: 20091007
  2. REMICADE [Suspect]
     Indication: ARTHRITIS
     Route: 042
     Dates: start: 20080101, end: 20091007
  3. ANTIDEPRESSANTS [Concomitant]
     Indication: DEPRESSION
  4. PAIN KILLERS [Concomitant]
     Indication: ARTHRITIS

REACTIONS (1)
  - TREMOR [None]
